FAERS Safety Report 23851710 (Version 1)
Quarter: 2024Q2

REPORT INFORMATION
  Report Type: Spontaneous
  Country: FR (occurrence: FR)
  Receive Date: 20240514
  Receipt Date: 20240514
  Transmission Date: 20240715
  Serious: Yes (Death)
  Sender: FDA-Public Use
  Company Number: FR-AFSSAPS-CN2024000397

PATIENT
  Age: 66 Year
  Sex: Male
  Weight: 88 kg

DRUGS (5)
  1. AMIODARONE [Interacting]
     Active Substance: AMIODARONE
     Indication: Atrial fibrillation
     Dosage: 800 MILLIGRAM, ONCE A DAY
     Route: 048
     Dates: start: 202402, end: 202402
  2. AMIODARONE [Interacting]
     Active Substance: AMIODARONE
     Dosage: 200 MILLIGRAM, ONCE A DAY
     Route: 048
     Dates: start: 202402
  3. ELIQUIS [Interacting]
     Active Substance: APIXABAN
     Indication: Atrial fibrillation
     Dosage: 5 MILLIGRAM, TWO TIMES A DAY
     Route: 048
     Dates: start: 202402
  4. LENVIMA [Interacting]
     Active Substance: LENVATINIB
     Indication: Thyroid cancer
     Dosage: 24 MILLIGRAM, ONCE A DAY
     Route: 048
     Dates: start: 20231010, end: 202402
  5. LENVIMA [Interacting]
     Active Substance: LENVATINIB
     Dosage: 18 MILLIGRAM, ONCE A DAY (BAISSE DE POSOLOGIE DU FAIT DE L^INTERACTION POTENTIELLE AVEC L^AMIODARONE
     Route: 048
     Dates: start: 202402

REACTIONS (1)
  - Haemoptysis [Fatal]

NARRATIVE: CASE EVENT DATE: 20240411
